FAERS Safety Report 10473369 (Version 2)
Quarter: 2014Q4

REPORT INFORMATION
  Report Type: Spontaneous
  Country: US (occurrence: US)
  Receive Date: 20140924
  Receipt Date: 20141107
  Transmission Date: 20150528
  Serious: Yes (Death, Life-Threatening, Other)
  Sender: FDA-Public Use
  Company Number: US-009507513-1409USA011194

PATIENT
  Sex: Male
  Weight: 144.22 kg

DRUGS (2)
  1. JANUVIA [Suspect]
     Active Substance: SITAGLIPTIN PHOSPHATE
     Dosage: 100 MG, QD
     Route: 048
     Dates: start: 20091117, end: 20121117
  2. JANUVIA [Suspect]
     Active Substance: SITAGLIPTIN PHOSPHATE
     Indication: TYPE 2 DIABETES MELLITUS
     Dosage: 100 MG, QD
     Route: 048
     Dates: start: 20080211, end: 20080312

REACTIONS (11)
  - Renal cyst [Unknown]
  - Umbilical hernia [Unknown]
  - Pancreatic carcinoma metastatic [Unknown]
  - Arteriosclerosis coronary artery [Unknown]
  - Haemorrhoids [Unknown]
  - Atelectasis [Unknown]
  - Metastases to liver [Unknown]
  - Adrenal mass [Unknown]
  - Death [Fatal]
  - Aortic aneurysm [Unknown]
  - Depression [Unknown]

NARRATIVE: CASE EVENT DATE: 20120914
